FAERS Safety Report 5774408-6 (Version None)
Quarter: 2008Q2

REPORT INFORMATION
  Report Type: 
  Country: None (occurrence: None)
  Receive Date: 20080616
  Receipt Date: 20080604
  Transmission Date: 20081010
  Serious: Yes (Other)
  Sender: FDA-Public Use
  Company Number: US-PFIZER INC-2008028644

PATIENT
  Sex: Female
  Weight: 67.1 kg

DRUGS (21)
  1. CHANTIX [Suspect]
     Indication: SMOKING CESSATION THERAPY
     Dates: start: 20080323, end: 20080402
  2. SEROQUEL [Suspect]
     Dosage: TEXT:100MG-FREQ:EVERY MORNING
  3. SEROQUEL [Suspect]
  4. RISPERDAL [Suspect]
  5. METFORMIN HCL [Concomitant]
     Indication: DIABETES MELLITUS
     Dosage: TEXT:1000MG TWICE DAILY PLUS-FREQ:100MG AT LUNCH AND 400MG AT HS
  6. ALAVERT [Concomitant]
     Indication: HYPERSENSITIVITY
     Route: 048
  7. AVANDIA [Concomitant]
  8. SIMVASTATIN [Concomitant]
     Indication: BLOOD CHOLESTEROL INCREASED
  9. KLONOPIN [Concomitant]
     Route: 048
  10. IMDUR [Concomitant]
     Indication: CARDIAC DISORDER
  11. ATENOLOL [Concomitant]
  12. ZOLOFT [Concomitant]
     Route: 048
  13. DRUG, UNSPECIFIED [Concomitant]
  14. LIPITOR [Concomitant]
  15. ASPIRIN [Concomitant]
  16. OSCAL 500-D [Concomitant]
     Dosage: TEXT:2 TABLETS-FREQ:DAILY
  17. NITROGLYCERIN [Concomitant]
     Dosage: TEXT:0.4MG-FREQ:AS NEEDED
  18. XOPENEX [Concomitant]
     Dosage: TEXT:2 PUFFS-FREQ:3 TIMES DAILY AS NEEDED
     Route: 055
  19. ADVAIR DISKUS 100/50 [Concomitant]
     Dosage: TEXT:100/50-FREQ:2 PUFFS TWICE DAILY
     Route: 055
  20. GLIPIZIDE [Concomitant]
     Route: 048
  21. OPTIVAR [Concomitant]
     Dosage: TEXT:ONE DROP EACH EYE-FREQ:TWICE DAILY
     Route: 031

REACTIONS (5)
  - BLOOD GLUCOSE INCREASED [None]
  - HALLUCINATION [None]
  - HYPONATRAEMIA [None]
  - MENTAL DISORDER [None]
  - SUICIDAL IDEATION [None]
